FAERS Safety Report 14977823 (Version 1)
Quarter: 2018Q2

REPORT INFORMATION
  Report Type: Other
  Country: IT (occurrence: IT)
  Receive Date: 20180606
  Receipt Date: 20180606
  Transmission Date: 20180711
  Serious: Yes (Other)
  Sender: FDA-Public Use
  Company Number: IT-ASTELLAS-2018US025328

PATIENT
  Age: 49 Year
  Sex: Female
  Weight: 38 kg

DRUGS (2)
  1. OLMEGAN [Concomitant]
     Indication: HYPERTENSION
     Dosage: 1 DF (20 MG/25 MG), ONCE DAILY
     Route: 048
  2. ERLOTINIB [Suspect]
     Active Substance: ERLOTINIB
     Indication: LUNG ADENOCARCINOMA
     Route: 048

REACTIONS (1)
  - Intertrigo [Recovering/Resolving]

NARRATIVE: CASE EVENT DATE: 20180403
